FAERS Safety Report 9516486 (Version 1)
Quarter: 2013Q1

REPORT INFORMATION
  Report Type: Spontaneous
  Country: US (occurrence: None)
  Receive Date: 20130305
  Receipt Date: 20130305
  Transmission Date: 20140127
  Serious: Yes (Other)
  Sender: FDA-Public Use
  Company Number: 163-21880-12080602

PATIENT
  Age: 79 Year
  Sex: Female
  Weight: 73.03 kg

DRUGS (12)
  1. REVLIMID (LENALIDOMIDE) (CAPSULES) [Suspect]
     Indication: MYELODYSPLASTIC SYNDROME
     Dosage: 5 MG, 1 IN 2 D, PO
     Route: 048
     Dates: start: 20110713
  2. AMITRIPTYLINE HCL (AMITRIPTYLINE HYDROCHLORIDE) [Concomitant]
  3. ASPIRIN (ACETYLSALICYLIC ACID) (ENTERIC-COATED TABLET)? [Concomitant]
  4. ATENOLOL (ATENOLOL) (TABLETS) [Concomitant]
  5. CALTRATE 600+D PLUS (TABLETS) [Concomitant]
  6. HCTZ (HYDROCHLORTHIAZIDE) (TABLETS) [Concomitant]
  7. LECITHIN (LECITHIN) (CAPSULES) [Concomitant]
  8. LIPITOR (ATORVASTATIN) (TABLETS) [Concomitant]
  9. MULTIVITAMINS (MULTIVITAMINS) (TABLETS) [Concomitant]
  10. OMEGA 3 (FISH OIL) (CAPSULES) [Concomitant]
  11. VITAMIN B12 (CYANOCOBALAMIN) (TABLETS) [Concomitant]
  12. VITAMIN B-6 (PYRIDOXINE HYDROCHLORIDE) (TABLETS) [Concomitant]

REACTIONS (2)
  - Neutrophil count decreased [None]
  - Haemoglobin decreased [None]
